FAERS Safety Report 4588952-0 (Version None)
Quarter: 2005Q1

REPORT INFORMATION
  Report Type: 
  Country: None (occurrence: None)
  Receive Date: 20050216
  Receipt Date: 20050127
  Transmission Date: 20050727
  Serious: Yes (Death, Hospitalization)
  Sender: FDA-Public Use
  Company Number: USA050189364

PATIENT
  Age: 71 Year
  Sex: Female

DRUGS (2)
  1. GEMZAR [Suspect]
     Indication: BLADDER CANCER
     Dosage: 800 MG/M2
     Dates: start: 20040504
  2. ARANESP [Concomitant]

REACTIONS (12)
  - ACUTE RESPIRATORY DISTRESS SYNDROME [None]
  - ALVEOLITIS ALLERGIC [None]
  - BLOOD GASES ABNORMAL [None]
  - BRONCHIAL CYST [None]
  - CARDIAC FAILURE CONGESTIVE [None]
  - DRUG TOXICITY [None]
  - HYPOXIA [None]
  - METASTASES TO LUNG [None]
  - NODULE [None]
  - PERICARDIAL EFFUSION [None]
  - PULMONARY EMBOLISM [None]
  - PULMONARY OEDEMA [None]
